FAERS Safety Report 17980645 (Version 2)
Quarter: 2020Q3

REPORT INFORMATION
  Report Type: Report from Study
  Country: None (occurrence: US)
  Receive Date: 20200704
  Receipt Date: 20200907
  Transmission Date: 20201103
  Serious: Yes (Other)
  Sender: FDA-Public Use
  Company Number: US-ABBVIE-20K-163-3468296-00

PATIENT
  Sex: Female

DRUGS (1)
  1. HUMIRA [Suspect]
     Active Substance: ADALIMUMAB
     Indication: ANKYLOSING SPONDYLITIS
     Dosage: CITRATE FREE
     Route: 058

REACTIONS (7)
  - Depression [Unknown]
  - Illness [Unknown]
  - Skin disorder [Unknown]
  - Renal neoplasm [Unknown]
  - Drug ineffective [Unknown]
  - Chest pain [Unknown]
  - Musculoskeletal discomfort [Unknown]
